FAERS Safety Report 23051713 (Version 1)
Quarter: 2023Q4

REPORT INFORMATION
  Report Type: Spontaneous
  Country: NL (occurrence: NL)
  Receive Date: 20231010
  Receipt Date: 20231010
  Transmission Date: 20240110
  Serious: No
  Sender: FDA-Public Use
  Company Number: NL-Sprout Pharmaceuticals, Inc.-2023SP000192

PATIENT
  Sex: Female

DRUGS (3)
  1. ADDYI [Suspect]
     Active Substance: FLIBANSERIN
     Indication: Product used for unknown indication
     Route: 048
  2. ADDYI [Suspect]
     Active Substance: FLIBANSERIN
     Dosage: HALF TABLET, 50MG, DAILY
     Route: 048
     Dates: end: 202306
  3. ADDYI [Suspect]
     Active Substance: FLIBANSERIN
     Route: 048
     Dates: start: 202306

REACTIONS (3)
  - Panic attack [Recovered/Resolved]
  - Prescribed underdose [Recovered/Resolved]
  - Drug ineffective [Unknown]
